FAERS Safety Report 7015182-5 (Version None)
Quarter: 2010Q3

REPORT INFORMATION
  Report Type: 
  Country: None (occurrence: None)
  Receive Date: 20100927
  Receipt Date: 20100113
  Transmission Date: 20110219
  Serious: Yes (Hospitalization)
  Sender: FDA-Public Use
  Company Number: US-ASTRAZENECA-2009SE29697

PATIENT
  Age: 59 Year
  Sex: Female
  Weight: 106.1 kg

DRUGS (9)
  1. ARIMIDEX [Suspect]
     Route: 048
     Dates: start: 20090901
  2. ARIMIDEX [Suspect]
     Route: 048
     Dates: start: 20091113, end: 20091123
  3. CRESTOR [Concomitant]
     Route: 048
     Dates: start: 20090501
  4. IMDUR [Concomitant]
  5. LASIX [Concomitant]
  6. KLONIDINE [Concomitant]
  7. COREG [Concomitant]
  8. DIOVAN [Concomitant]
  9. POTASSIUM [Concomitant]

REACTIONS (1)
  - MYALGIA [None]
